FAERS Safety Report 17870256 (Version 1)
Quarter: 2020Q2

REPORT INFORMATION
  Report Type: Spontaneous
  Country: CY (occurrence: CY)
  Receive Date: 20200608
  Receipt Date: 20200608
  Transmission Date: 20200714
  Serious: Yes (Other)
  Sender: FDA-Public Use
  Company Number: CY-ADVANZ PHARMA-202005006020

PATIENT

DRUGS (4)
  1. ALFUZOSIN [Suspect]
     Active Substance: ALFUZOSIN
     Indication: PRODUCT USED FOR UNKNOWN INDICATION
     Dosage: UNK
     Route: 065
     Dates: start: 2018
  2. SALUREX [Concomitant]
     Dosage: UNK
  3. WARFARIN SODIUM CLATHRATE [Concomitant]
     Dosage: UNK
  4. EMCONCOR COR [Concomitant]
     Active Substance: BISOPROLOL
     Dosage: UNK

REACTIONS (2)
  - Erectile dysfunction [Unknown]
  - Prostatic disorder [Unknown]
